FAERS Safety Report 18503226 (Version 16)
Quarter: 2023Q4

REPORT INFORMATION
  Report Type: Spontaneous
  Country: US (occurrence: US)
  Receive Date: 20201113
  Receipt Date: 20231026
  Transmission Date: 20240110
  Serious: Yes (Hospitalization, Other)
  Sender: FDA-Public Use
  Company Number: US-PFIZER INC-2020445763

PATIENT
  Age: 78 Year
  Sex: Female
  Weight: 63.492 kg

DRUGS (2)
  1. XELJANZ [Suspect]
     Active Substance: TOFACITINIB CITRATE
     Indication: Rheumatoid arthritis
     Dosage: 5 MG, 1X/DAY (DATE STARTED: 2019/2020)
     Dates: start: 2019, end: 20230906
  2. METHOTREXATE [Concomitant]
     Active Substance: METHOTREXATE
     Dosage: UNK
     Dates: start: 2005

REACTIONS (6)
  - COVID-19 [Recovered/Resolved]
  - Headache [Not Recovered/Not Resolved]
  - Sensitivity to weather change [Recovered/Resolved]
  - Vertigo [Recovering/Resolving]
  - Pain [Unknown]
  - Off label use [Unknown]

NARRATIVE: CASE EVENT DATE: 20200101
